FAERS Safety Report 25104406 (Version 1)
Quarter: 2025Q1

REPORT INFORMATION
  Report Type: Spontaneous
  Country: US (occurrence: None)
  Receive Date: 20250320
  Receipt Date: 20250320
  Transmission Date: 20250408
  Serious: No
  Sender: FDA-CTU
  Company Number: None

PATIENT
  Sex: Female

DRUGS (6)
  1. GANIRELIX [Suspect]
     Active Substance: GANIRELIX
     Indication: Infertility
     Dosage: FREQUENCY : DAILY;?STRENGTH: 250MCG/0.5
     Route: 058
     Dates: start: 202412
  2. LEUPROLIDE ACETATE [Suspect]
     Active Substance: LEUPROLIDE ACETATE
     Indication: Infertility
     Route: 058
  3. FOLLISTIM AQ PEN [Concomitant]
  4. PREGNYL MDV [Concomitant]
  5. MENOPUR [Concomitant]
     Active Substance: FOLLITROPIN\LUTEINIZING HORMONE
  6. OMDREL [Concomitant]

REACTIONS (1)
  - Blood viscosity abnormal [None]
